FAERS Safety Report 4777479-9 (Version None)
Quarter: 2005Q3

REPORT INFORMATION
  Report Type: 
  Country: None (occurrence: None)
  Receive Date: 20050915
  Receipt Date: 20050830
  Transmission Date: 20060218
  Serious: Yes (Death, Hospitalization)
  Sender: FDA-Public Use
  Company Number: USA030537575

PATIENT
  Age: 26 Year
  Sex: Female

DRUGS (3)
  1. GEMZAR [Suspect]
     Indication: HODGKIN'S DISEASE NODULAR SCLEROSIS STAGE UNSPECIFIED
     Dosage: 750 MG/M2
     Dates: start: 20030401
  2. RITUXIMAB [Concomitant]
  3. VINCRISTINE [Concomitant]

REACTIONS (10)
  - CARDIAC FAILURE CONGESTIVE [None]
  - CARDIAC TAMPONADE [None]
  - DISEASE PROGRESSION [None]
  - HODGKIN'S DISEASE [None]
  - LYMPHADENOPATHY [None]
  - PERICARDIAL EFFUSION [None]
  - PERICARDITIS CONSTRICTIVE [None]
  - PULMONARY HYPERTENSION [None]
  - RECALL PHENOMENON [None]
  - RESTRICTIVE CARDIOMYOPATHY [None]
